FAERS Safety Report 13511209 (Version 1)
Quarter: 2017Q2

REPORT INFORMATION
  Report Type: Spontaneous
  Country: US (occurrence: US)
  Receive Date: 20170503
  Receipt Date: 20170503
  Transmission Date: 20170830
  Serious: Yes (Hospitalization, Other)
  Sender: FDA-Public Use
  Company Number: US-BAYER-2017-081985

PATIENT
  Age: 72 Year
  Sex: Male

DRUGS (1)
  1. ACETYLSALICYLIC ACID({=100 MG) [Suspect]
     Active Substance: ASPIRIN

REACTIONS (7)
  - Encephalopathy [None]
  - Confusional state [None]
  - Subdural haematoma [None]
  - Hemiparesis [None]
  - Cerebral infarction [None]
  - Clumsiness [None]
  - Hemiplegia [None]
